FAERS Safety Report 19704229 (Version 1)
Quarter: 2021Q3

REPORT INFORMATION
  Report Type: Spontaneous
  Country: US (occurrence: US)
  Receive Date: 20210814
  Receipt Date: 20210814
  Transmission Date: 20211014
  Serious: Yes (Other)
  Sender: FDA-Public Use
  Company Number: None

PATIENT
  Age: 32 Year
  Sex: Female
  Weight: 54.9 kg

DRUGS (15)
  1. BIOHM PREBIOTICS [Concomitant]
  2. THERA TEARS ADVANCED [Concomitant]
  3. LAMOTRIGINE. [Suspect]
     Active Substance: LAMOTRIGINE
     Indication: SEIZURE
     Dosage: ?          QUANTITY:3 TABLET(S);?
     Route: 048
     Dates: start: 20210621, end: 20210809
  4. KEPPRA (GENERIC) [Concomitant]
  5. THERA TEARS EYE [Concomitant]
  6. VITAMIN D [Concomitant]
     Active Substance: VITAMIN D NOS
  7. CETIRIZINE HYDROCHLORIDE. [Concomitant]
     Active Substance: CETIRIZINE HYDROCHLORIDE
  8. ZOLPIDEM [Concomitant]
     Active Substance: ZOLPIDEM TARTRATE
  9. ACETAMINOPHEN. [Concomitant]
     Active Substance: ACETAMINOPHEN
  10. FETZIMA [Concomitant]
     Active Substance: LEVOMILNACIPRAN HYDROCHLORIDE
  11. DEXTROAMPHETAMINE SALT COMBO [Concomitant]
  12. FLUTICASONE PROPIONATE. [Concomitant]
     Active Substance: FLUTICASONE PROPIONATE
  13. CERAVE ITCH RELIEF MOISTURIZING [Concomitant]
     Active Substance: PRAMOXINE HYDROCHLORIDE
  14. BIOHM PROBIOTICS [Concomitant]
  15. PREDNISONE. [Concomitant]
     Active Substance: PREDNISONE

REACTIONS (18)
  - Rash [None]
  - Pruritus [None]
  - Swelling face [None]
  - Throat tightness [None]
  - Pyrexia [None]
  - Sinusitis [None]
  - Head discomfort [None]
  - Rash macular [None]
  - Eye swelling [None]
  - Mouth ulceration [None]
  - Teething [None]
  - Headache [None]
  - Musculoskeletal stiffness [None]
  - Photophobia [None]
  - Hyponatraemia [None]
  - Oropharyngeal pain [None]
  - Urticaria [None]
  - Fatigue [None]

NARRATIVE: CASE EVENT DATE: 20210802
